FAERS Safety Report 4585336-6 (Version None)
Quarter: 2005Q1

REPORT INFORMATION
  Report Type: 
  Country: None (occurrence: None)
  Receive Date: 20050214
  Receipt Date: 20050131
  Transmission Date: 20050727
  Serious: Yes (Other)
  Sender: FDA-Public Use
  Company Number: 2005001506

PATIENT
  Sex: Female

DRUGS (2)
  1. DEPO-PROVERA [Suspect]
     Indication: ILL-DEFINED DISORDER
     Dosage: 150 MG (150 MG, EVERY 3 MONTHS/FIRST INJECTION), INTRAMUSCULAR
     Route: 030
     Dates: start: 20041209, end: 20041209
  2. SALBUTAMOL (SALBUTAMOL) [Concomitant]

REACTIONS (2)
  - DYSPNOEA [None]
  - URTICARIA GENERALISED [None]
